FAERS Safety Report 6611201-6 (Version None)
Quarter: 2010Q1

REPORT INFORMATION
  Report Type: 
  Country: None (occurrence: None)
  Receive Date: 20100303
  Receipt Date: 20100216
  Transmission Date: 20100710
  Serious: Yes (Other)
  Sender: FDA-Public Use
  Company Number: DE-ELI_LILLY_AND_COMPANY-DE201002004143

PATIENT
  Sex: Female

DRUGS (3)
  1. FORTEO [Suspect]
     Indication: OSTEOPOROSIS
     Dosage: UNK, UNKNOWN
     Route: 058
     Dates: start: 20100201, end: 20100208
  2. RAMIPRIL [Concomitant]
     Dosage: 25 MG, UNKNOWN
     Route: 048
  3. CALCILAC                           /00944201/ [Concomitant]
     Dosage: UNK, UNKNOWN
     Route: 065

REACTIONS (5)
  - ANXIETY [None]
  - ARRHYTHMIA [None]
  - DIZZINESS [None]
  - HEADACHE [None]
  - PALPITATIONS [None]
